APPROVED DRUG PRODUCT: ORILISSA
Active Ingredient: ELAGOLIX SODIUM
Strength: EQ 150MG BASE
Dosage Form/Route: TABLET;ORAL
Application: N210450 | Product #001
Applicant: ABBVIE INC
Approved: Jul 23, 2018 | RLD: Yes | RS: No | Type: RX

PATENTS:
Patent 7419983 | Expires: Jul 6, 2029
Patent 10537572 | Expires: Sep 1, 2036
Patent 10682351 | Expires: Sep 1, 2036
Patent 11690854 | Expires: Apr 19, 2038
Patent 11690845 | Expires: Aug 27, 2040
Patent 11707464 | Expires: Mar 14, 2034
Patent 12102637 | Expires: Aug 20, 2038
Patent 11542239 | Expires: Jul 23, 2039